FAERS Safety Report 22139634 (Version 3)
Quarter: 2023Q2

REPORT INFORMATION
  Report Type: Report from Study
  Country: US (occurrence: US)
  Receive Date: 20230327
  Receipt Date: 20230510
  Transmission Date: 20230722
  Serious: Yes (Hospitalization, Other)
  Sender: FDA-Public Use
  Company Number: US-ABBVIE-4271392

PATIENT
  Age: 55 Year
  Sex: Female

DRUGS (1)
  1. SKYRIZI [Suspect]
     Active Substance: RISANKIZUMAB-RZAA
     Indication: Psoriasis
     Route: 058

REACTIONS (8)
  - Mass [Not Recovered/Not Resolved]
  - Benign neoplasm [Recovering/Resolving]
  - Atrial fibrillation [Recovering/Resolving]
  - Psoriasis [Not Recovered/Not Resolved]
  - Therapeutic response shortened [Unknown]
  - Chest discomfort [Unknown]
  - Chest pain [Unknown]
  - Dyspnoea [Unknown]

NARRATIVE: CASE EVENT DATE: 20230101
